FAERS Safety Report 5840175-0 (Version None)
Quarter: 2008Q3

REPORT INFORMATION
  Report Type: 
  Country: None (occurrence: None)
  Receive Date: 20080811
  Receipt Date: 20080731
  Transmission Date: 20090109
  Serious: Yes (Other)
  Sender: FDA-Public Use
  Company Number: US-JNJFOC-20080800561

PATIENT

DRUGS (1)
  1. ULTRAM [Suspect]
     Indication: PAIN
     Route: 048

REACTIONS (1)
  - HYPOGONADISM [None]
